FAERS Safety Report 8688212 (Version 3)
Quarter: 2013Q1

REPORT INFORMATION
  Report Type: Report from Study
  Country: DE (occurrence: DE)
  Receive Date: 20120727
  Receipt Date: 20130208
  Transmission Date: 20140127
  Serious: Yes (Death)
  Sender: FDA-Public Use
  Company Number: DE-JNJFOC-20120713400

PATIENT
  Age: 57 Year
  Sex: Male

DRUGS (3)
  1. SIMPONI [Suspect]
     Indication: RHEUMATOID ARTHRITIS
     Route: 058
     Dates: start: 201103, end: 201108
  2. METHOTREXATE [Concomitant]
     Indication: RHEUMATOID ARTHRITIS
     Dates: start: 200905
  3. CERTOLIZUMAB [Concomitant]
     Indication: RHEUMATOID ARTHRITIS
     Dates: start: 201109, end: 201110

REACTIONS (3)
  - Small cell lung cancer [Fatal]
  - Diabetes mellitus [Unknown]
  - Hypertension [Unknown]
